FAERS Safety Report 26164226 (Version 1)
Quarter: 2025Q4

REPORT INFORMATION
  Report Type: Spontaneous
  Country: US (occurrence: US)
  Receive Date: 20251216
  Receipt Date: 20251216
  Transmission Date: 20260118
  Serious: No
  Sender: SANOFI AVENTIS
  Company Number: US-SA-2025SA373449

PATIENT
  Sex: Female
  Weight: 177 kg

DRUGS (1)
  1. DUPIXENT [Suspect]
     Active Substance: DUPILUMAB
     Indication: Dermatitis atopic
     Dosage: 300 MG, QOW
     Route: 058

REACTIONS (16)
  - Joint swelling [Unknown]
  - Eyelid irritation [Unknown]
  - Abnormal sensation in eye [Unknown]
  - Dyspnoea [Unknown]
  - Peripheral swelling [Unknown]
  - Formication [Unknown]
  - Ear discomfort [Unknown]
  - Skin irritation [Unknown]
  - Visual impairment [Unknown]
  - Pruritus [Unknown]
  - Erythema [Unknown]
  - Nasopharyngitis [Unknown]
  - Vision blurred [Unknown]
  - Secretion discharge [Unknown]
  - Oral herpes [Unknown]
  - Arthralgia [Unknown]

NARRATIVE: CASE EVENT DATE: 20251201
